FAERS Safety Report 13679255 (Version 2)
Quarter: 2017Q3

REPORT INFORMATION
  Report Type: Spontaneous
  Country: PL (occurrence: PL)
  Receive Date: 20170622
  Receipt Date: 20170705
  Transmission Date: 20171127
  Serious: Yes (Hospitalization)
  Sender: FDA-Public Use
  Company Number: PHHY2017PL087886

PATIENT
  Age: 51 Year
  Sex: Female

DRUGS (8)
  1. LOSARTAN. [Suspect]
     Active Substance: LOSARTAN
     Indication: HYPERTENSION
     Route: 065
  2. HYDROCHLOROTHIAZIDE. [Concomitant]
     Active Substance: HYDROCHLOROTHIAZIDE
     Indication: HYPERTENSION
     Route: 065
  3. KETOPROFEN. [Suspect]
     Active Substance: KETOPROFEN
     Indication: HEADACHE
     Route: 065
  4. ASPIRIN. [Concomitant]
     Active Substance: ASPIRIN
     Indication: PRODUCT USED FOR UNKNOWN INDICATION
     Route: 065
  5. TRAMADOL HYDROCHLORID/PARACETAMOL [Concomitant]
     Active Substance: ACETAMINOPHEN\TRAMADOL HYDROCHLORIDE
     Indication: PRODUCT USED FOR UNKNOWN INDICATION
     Route: 065
  6. GESTODENO+ETINILESTRADIOL [Concomitant]
     Indication: MENSTRUATION IRREGULAR
     Route: 065
  7. ENOXAPARINA [Concomitant]
     Active Substance: ENOXAPARIN
     Dosage: 0.8 ML, QD
     Route: 065
  8. BISOPROLOL [Suspect]
     Active Substance: BISOPROLOL
     Indication: HYPERTENSION
     Route: 065

REACTIONS (11)
  - Cerebral venous thrombosis [Unknown]
  - Menorrhagia [Unknown]
  - Fibrin D dimer increased [Unknown]
  - Low density lipoprotein increased [Unknown]
  - Drug ineffective [Unknown]
  - Paraesthesia [Unknown]
  - Scintillating scotoma [Unknown]
  - Obesity [Unknown]
  - Monoparesis [Unknown]
  - Memory impairment [Unknown]
  - Embolism venous [Unknown]
